FAERS Safety Report 4384222-4 (Version None)
Quarter: 2004Q2

REPORT INFORMATION
  Report Type: 
  Country: None (occurrence: None)
  Receive Date: 20040618
  Receipt Date: 20040610
  Transmission Date: 20050107
  Serious: Yes (Hospitalization)
  Sender: FDA-Public Use
  Company Number: US-JNJFOC-20040603461

PATIENT
  Age: 21 Year
  Sex: Female

DRUGS (3)
  1. LEVAQUIN [Suspect]
     Indication: PYELONEPHRITIS
  2. PREVACID [Concomitant]
  3. ZOLOFT [Concomitant]

REACTIONS (2)
  - DIPLOPIA [None]
  - INTRACRANIAL PRESSURE INCREASED [None]
